FAERS Safety Report 25907261 (Version 1)
Quarter: 2025Q4

REPORT INFORMATION
  Report Type: Spontaneous
  Country: US (occurrence: US)
  Receive Date: 20251010
  Receipt Date: 20251010
  Transmission Date: 20260119
  Serious: Yes (Life-Threatening, Hospitalization, Congenital Anomaly, Other)
  Sender: MSN LABORATORIES PRIVATE LIMITED
  Company Number: US-MSNLABS-2025MSNLIT02958

PATIENT

DRUGS (2)
  1. VIGABATRIN [Suspect]
     Active Substance: VIGABATRIN
     Indication: Infantile spasms
     Dosage: 48 MG/KG/D DIVIDED TWICE DAILY AND TRANSITIONED TO 3 TIMES DAILY
     Route: 065
  2. VIGABATRIN [Suspect]
     Active Substance: VIGABATRIN
     Dosage: 108 MG/KG/D DIVIDED TID
     Route: 065

REACTIONS (8)
  - Hydrocephalus [Recovering/Resolving]
  - Tracheomalacia [Unknown]
  - Condition aggravated [Unknown]
  - Respiratory failure [Unknown]
  - Hypotonia [Recovering/Resolving]
  - Somnolence [Recovering/Resolving]
  - Magnetic resonance imaging head abnormal [Recovering/Resolving]
  - Intramyelinic oedema [Recovered/Resolved]
